FAERS Safety Report 9103564 (Version 1)
Quarter: 2013Q1

REPORT INFORMATION
  Report Type: Spontaneous
  Country: ZA (occurrence: ZA)
  Receive Date: 20130219
  Receipt Date: 20130219
  Transmission Date: 20140127
  Serious: Yes (Other)
  Sender: FDA-Public Use
  Company Number: ZA-PFIZER INC-2013030989

PATIENT
  Age: 30 Year
  Sex: Male

DRUGS (9)
  1. CHAMPIX [Suspect]
     Indication: SMOKING CESSATION THERAPY
     Dosage: UNK
     Route: 048
     Dates: start: 2012, end: 2012
  2. VIAGRA [Suspect]
     Indication: ERECTILE DYSFUNCTION
     Dosage: UNK
     Route: 048
  3. PREXUM [Concomitant]
     Dosage: UNK
  4. LEVEMIR [Concomitant]
     Dosage: UNK
  5. HUMALOG [Concomitant]
     Dosage: UNK
  6. IVADAL [Concomitant]
     Dosage: UNK
  7. STAMINOGRO [Concomitant]
     Dosage: UNK
  8. COSOPT [Concomitant]
     Dosage: UNK
  9. PARIET [Concomitant]
     Dosage: UNK
     Route: 048

REACTIONS (3)
  - Blood glucose fluctuation [Recovered/Resolved]
  - Personality change [Recovered/Resolved]
  - Depression [Recovered/Resolved]
